FAERS Safety Report 5146062-8 (Version None)
Quarter: 2006Q4

REPORT INFORMATION
  Report Type: 
  Country: None (occurrence: None)
  Receive Date: 20061108
  Receipt Date: 20061101
  Transmission Date: 20070319
  Serious: Yes (Death)
  Sender: FDA-Public Use
  Company Number: CH-GLAXOSMITHKLINE-B0445640A

PATIENT
  Sex: Male

DRUGS (3)
  1. LAMICTAL [Suspect]
     Indication: DRUG USE FOR UNKNOWN INDICATION
     Route: 048
  2. ANTIBIOTICS [Concomitant]
  3. CHEMOTHERAPY [Concomitant]
     Indication: BRAIN NEOPLASM

REACTIONS (1)
  - TOXIC EPIDERMAL NECROLYSIS [None]
